FAERS Safety Report 4600736-3 (Version None)
Quarter: 2005Q1

REPORT INFORMATION
  Report Type: 
  Country: None (occurrence: None)
  Receive Date: 20050307
  Receipt Date: 20050222
  Transmission Date: 20050727
  Serious: Yes (Life-Threatening, Hospitalization)
  Sender: FDA-Public Use
  Company Number: US-MERCK-0502USA03168

PATIENT
  Age: 74 Year
  Sex: Male

DRUGS (4)
  1. EMEND [Suspect]
     Route: 048
     Dates: start: 20041110, end: 20041110
  2. EMEND [Suspect]
     Route: 048
     Dates: start: 20041111, end: 20041112
  3. ETOPOSIDE [Concomitant]
     Route: 065
  4. CISPLATIN [Concomitant]
     Route: 065

REACTIONS (4)
  - MUCOSAL INFLAMMATION [None]
  - NEUTROPENIA [None]
  - OESOPHAGITIS [None]
  - WHITE BLOOD CELL COUNT DECREASED [None]
